FAERS Safety Report 5349292-5 (Version None)
Quarter: 2007Q2

REPORT INFORMATION
  Report Type: 
  Country: None (occurrence: None)
  Receive Date: 20070607
  Receipt Date: 20070601
  Transmission Date: 20071010
  Serious: Yes (Hospitalization)
  Sender: FDA-Public Use
  Company Number: B0454145A

PATIENT
  Sex: Female
  Weight: 3.1 kg

DRUGS (3)
  1. PAXIL [Suspect]
     Indication: DRUG USE FOR UNKNOWN INDICATION
     Dates: start: 20060401
  2. CEFOTAXIME [Concomitant]
     Dosage: .3MG THREE TIMES PER DAY
  3. OXYGEN [Concomitant]
     Route: 065

REACTIONS (7)
  - DRUG EXPOSURE DURING PREGNANCY [None]
  - HYPERAESTHESIA [None]
  - HYPERVENTILATION [None]
  - IRRITABILITY [None]
  - MECONIUM STAIN [None]
  - RESPIRATORY DISORDER NEONATAL [None]
  - TACHYPNOEA [None]
